FAERS Safety Report 10058412 (Version 1)
Quarter: 2014Q2

REPORT INFORMATION
  Report Type: Spontaneous
  Country: US (occurrence: US)
  Receive Date: 20140404
  Receipt Date: 20140404
  Transmission Date: 20141212
  Serious: No
  Sender: FDA-Public Use
  Company Number: US-BAYER-2014-050220

PATIENT
  Age: 83 Year
  Sex: Female
  Weight: 72.56 kg

DRUGS (1)
  1. ALEVE TABLET [Suspect]
     Indication: ARTHRITIS
     Dosage: 1 DF, BID
     Route: 048
     Dates: start: 201403, end: 20140327

REACTIONS (2)
  - Burning sensation [Not Recovered/Not Resolved]
  - Pollakiuria [Recovered/Resolved]
